FAERS Safety Report 10991162 (Version 1)
Quarter: 2015Q2

REPORT INFORMATION
  Report Type: Spontaneous
  Country: DE (occurrence: DE)
  Receive Date: 20150406
  Receipt Date: 20150406
  Transmission Date: 20150821
  Serious: Yes (Hospitalization, Other)
  Sender: FDA-Public Use
  Company Number: DE-JNJFOC-20140615262

PATIENT
  Age: 66 Year
  Sex: Male
  Weight: 148 kg

DRUGS (10)
  1. CANDESARTAN [Concomitant]
     Active Substance: CANDESARTAN
     Dosage: DAILY DOSE 16 MG/12.5 MG
     Route: 065
  2. DECODERM TRI [Concomitant]
     Active Substance: FLUPREDNIDENE ACETATE\MICONAZOLE NITRATE
     Dosage: DAILY DOSE 16 MG/12.5 MG
     Route: 065
     Dates: start: 20141129
  3. MARCUMAR [Concomitant]
     Active Substance: PHENPROCOUMON
     Route: 065
  4. XARELTO [Suspect]
     Active Substance: RIVAROXABAN
     Indication: ATRIAL FIBRILLATION
     Route: 048
     Dates: start: 20131129
  5. SIMVASTATIN. [Concomitant]
     Active Substance: SIMVASTATIN
     Route: 065
  6. DIMETINDENE MALEATE [Concomitant]
     Active Substance: DIMETHINDENE MALEATE
     Route: 065
  7. PREDNISOLON [Concomitant]
     Active Substance: PREDNISOLONE
     Route: 065
  8. TORASEMID [Concomitant]
     Active Substance: TORSEMIDE
     Dosage: DAILY DOSE 16 MG/12.5 MG
     Route: 065
  9. PANTOPRAZOLE [Concomitant]
     Active Substance: PANTOPRAZOLE SODIUM
     Route: 065
  10. XARELTO [Suspect]
     Active Substance: RIVAROXABAN
     Indication: CEREBROVASCULAR ACCIDENT PROPHYLAXIS
     Route: 048
     Dates: start: 20131129

REACTIONS (13)
  - Neurodermatitis [Unknown]
  - Staphylococcal scalded skin syndrome [Not Recovered/Not Resolved]
  - Psoriasis [Unknown]
  - Chest pain [Unknown]
  - Dyspnoea [Unknown]
  - Rash [Unknown]
  - Pruritus [Unknown]
  - Dizziness [Unknown]
  - Sleep apnoea syndrome [Unknown]
  - Rash pruritic [Unknown]
  - Fluid retention [Unknown]
  - Asthenia [Unknown]
  - Urticaria [Unknown]

NARRATIVE: CASE EVENT DATE: 201501
